FAERS Safety Report 9839339 (Version 1)
Quarter: 2014Q1

REPORT INFORMATION
  Report Type: Report from Study
  Country: CA (occurrence: CA)
  Receive Date: 20140123
  Receipt Date: 20140123
  Transmission Date: 20141002
  Serious: Yes (Other)
  Sender: FDA-Public Use
  Company Number: PHHY2014CA008120

PATIENT
  Sex: Female

DRUGS (1)
  1. ACLASTA [Suspect]
     Indication: OSTEOPOROSIS
     Dosage: UNK
     Route: 042
     Dates: start: 20121119

REACTIONS (5)
  - Road traffic accident [Unknown]
  - Lower limb fracture [Unknown]
  - Ankle fracture [Unknown]
  - Gastrointestinal injury [Unknown]
  - Splenic injury [Unknown]
